FAERS Safety Report 6133877-2 (Version None)
Quarter: 2009Q1

REPORT INFORMATION
  Report Type: 
  Country: None (occurrence: None)
  Receive Date: 20090326
  Receipt Date: 20090317
  Transmission Date: 20090719
  Serious: Yes (Other)
  Sender: FDA-Public Use
  Company Number: PHHY2009DE11066

PATIENT
  Sex: Female

DRUGS (2)
  1. EXJADE [Suspect]
     Indication: HAEMOSIDEROSIS
     Dosage: 1500 MG, QD
     Route: 048
     Dates: start: 20070501
  2. CALCIUM [Concomitant]

REACTIONS (2)
  - HAEMATURIA [None]
  - SKIN DISCOLOURATION [None]
